FAERS Safety Report 25358061 (Version 1)
Quarter: 2025Q2

REPORT INFORMATION
  Report Type: Spontaneous
  Country: CH (occurrence: CH)
  Receive Date: 20250526
  Receipt Date: 20250526
  Transmission Date: 20250716
  Serious: Yes (Hospitalization, Other)
  Sender: CHEPLAPHARM
  Company Number: None

PATIENT
  Age: 64 Year
  Sex: Male
  Weight: 88.099 kg

DRUGS (6)
  1. CAPECITABINE [Suspect]
     Active Substance: CAPECITABINE
     Indication: Metastases to liver
     Route: 048
     Dates: start: 20250214, end: 20250414
  2. OXALIPLATIN [Suspect]
     Active Substance: OXALIPLATIN
     Indication: Metastases to liver
     Route: 042
     Dates: start: 20250314, end: 20250407
  3. MAGNESIUM [Concomitant]
     Active Substance: MAGNESIUM
     Dosage: PAUSED (INCIDENTAL EVENT)?REPORTED AS: PAUSIERT (INCIDENTAL EVENT)
     Route: 048
     Dates: end: 20250421
  4. FOLIC ACID [Concomitant]
     Active Substance: FOLIC ACID
     Route: 048
  5. CHOLECALCIFEROL [Concomitant]
     Active Substance: CHOLECALCIFEROL
     Route: 048
  6. AMLODIPINE BESYLATE [Concomitant]
     Active Substance: AMLODIPINE BESYLATE
     Dosage: PAUSED (INCIDENTAL EVENT)?REPORTED AS: PAUSIERT (INCIDENTAL EVENT)
     Route: 048
     Dates: end: 20250416

REACTIONS (4)
  - Enteritis [Recovered/Resolved]
  - Diverticulitis [Recovered/Resolved]
  - Neutropenia [Not Recovered/Not Resolved]
  - Thrombocytopenia [Not Recovered/Not Resolved]

NARRATIVE: CASE EVENT DATE: 20250416
